FAERS Safety Report 7556412-0 (Version None)
Quarter: 2011Q2

REPORT INFORMATION
  Report Type: 
  Country: None (occurrence: None)
  Receive Date: 20110620
  Receipt Date: 20110613
  Transmission Date: 20111010
  Serious: Yes (Other)
  Sender: FDA-Public Use
  Company Number: US-JNJFOC-20101004635

PATIENT
  Sex: Female

DRUGS (1)
  1. LEVAQUIN [Suspect]
     Indication: DEVICE RELATED INFECTION
     Route: 048
     Dates: start: 20071108, end: 20090127

REACTIONS (2)
  - TENDONITIS [None]
  - EPICONDYLITIS [None]
